FAERS Safety Report 14813137 (Version 1)
Quarter: 2018Q2

REPORT INFORMATION
  Report Type: Spontaneous
  Country: FR (occurrence: FR)
  Receive Date: 20180426
  Receipt Date: 20180426
  Transmission Date: 20180711
  Serious: Yes (Other)
  Sender: FDA-Public Use
  Company Number: FR-MERCK KGAA-2046558

PATIENT
  Age: 59 Year
  Sex: Female

DRUGS (1)
  1. NOVOTHYROX [Suspect]
     Active Substance: LEVOTHYROXINE SODIUM
     Indication: PRODUCT USED FOR UNKNOWN INDICATION

REACTIONS (25)
  - Fatigue [None]
  - Spinal fracture [None]
  - Diarrhoea [None]
  - Joint ankylosis [None]
  - Memory impairment [None]
  - Blood thyroid stimulating hormone decreased [None]
  - Myocardial infarction [None]
  - Presyncope [None]
  - Limb discomfort [None]
  - Disturbance in attention [None]
  - Dyspnoea [None]
  - Blood thyroid stimulating hormone increased [None]
  - Loss of consciousness [None]
  - Fall [None]
  - Lumbar vertebral fracture [None]
  - Arthralgia [None]
  - Pain [None]
  - Headache [None]
  - Irritability [None]
  - Palpitations [None]
  - Dizziness [None]
  - Insomnia [None]
  - Myalgia [None]
  - Muscle spasms [None]
  - Asthenia [None]

NARRATIVE: CASE EVENT DATE: 201707
